FAERS Safety Report 12675353 (Version 1)
Quarter: 2016Q3

REPORT INFORMATION
  Report Type: Not Available
  Country: FR (occurrence: FR)
  Receive Date: 20160822
  Receipt Date: 20160822
  Transmission Date: 20161109
  Serious: Yes (Hospitalization)
  Sender: FDA-Public Use
  Company Number: FR-MUNDIPHARMA DS AND PHARMACOVIGILANCE-GBR-2016-0039524

PATIENT
  Age: 83 Year
  Sex: Female

DRUGS (10)
  1. OXYNORMORO COMPRIME ORODISPERSIBLE 5 MG [Suspect]
     Active Substance: OXYCODONE HYDROCHLORIDE
     Indication: PAIN
     Dosage: 1 DF, DAILY
     Route: 048
     Dates: start: 20160402, end: 20160402
  2. NISISCO [Concomitant]
     Active Substance: HYDROCHLOROTHIAZIDE\VALSARTAN
     Indication: HYPERTENSION
     Dosage: 1 DF, AM
     Route: 048
  3. LOVENOX [Concomitant]
     Active Substance: ENOXAPARIN SODIUM
     Dosage: 1 DF, PM
     Route: 058
  4. OXYNORM, GELULE [Suspect]
     Active Substance: OXYCODONE HYDROCHLORIDE
     Indication: PAIN
     Dosage: 10 MG, QID
     Route: 048
     Dates: start: 20160328, end: 20160407
  5. OXYNORM, GELULE [Suspect]
     Active Substance: OXYCODONE HYDROCHLORIDE
     Dosage: 5 MG, QID
     Route: 048
     Dates: start: 20160408, end: 20160409
  6. ONGLYZA [Concomitant]
     Active Substance: SAXAGLIPTIN HYDROCHLORIDE
     Indication: DIABETES MELLITUS
     Dosage: 1 DF, AM
     Route: 048
  7. VOGALENE [Suspect]
     Active Substance: METOPIMAZINE
     Indication: VOMITING
     Dosage: 1 DF, DAILY
     Route: 048
     Dates: start: 20160403, end: 20160404
  8. DAFALGAN [Concomitant]
     Active Substance: ACETAMINOPHEN
     Dosage: 2 DF, TID
     Route: 048
  9. DUROGESIC [Suspect]
     Active Substance: FENTANYL
     Indication: PAIN
     Dosage: 1 DF, Q72H
     Route: 062
     Dates: start: 20160328, end: 20160405
  10. VOGALENE [Suspect]
     Active Substance: METOPIMAZINE
     Indication: VOMITING
     Dosage: 1 DF, DAILY
     Route: 054
     Dates: start: 20160404, end: 20160411

REACTIONS (3)
  - Abnormal behaviour [Recovered/Resolved]
  - Persecutory delusion [Recovered/Resolved]
  - Confusional state [Recovered/Resolved]

NARRATIVE: CASE EVENT DATE: 20160405
